FAERS Safety Report 8402819-9 (Version None)
Quarter: 2012Q2

REPORT INFORMATION
  Report Type: 
  Country: None (occurrence: None)
  Receive Date: 20120601
  Receipt Date: 20120517
  Transmission Date: 20120825
  Serious: Yes (Disabling)
  Sender: FDA-Public Use
  Company Number: JP-BAYER-2012-048613

PATIENT
  Age: 78 Year
  Sex: Male
  Weight: 56 kg

DRUGS (22)
  1. SELBEX [Concomitant]
     Indication: ARRHYTHMIA
     Dosage: UNK
     Route: 048
     Dates: end: 20080729
  2. OMEPRAZOLE [Concomitant]
     Dosage: UNK
     Route: 030
     Dates: start: 20080802, end: 20080807
  3. SG GRANULES [Concomitant]
     Indication: ERYTHEMA MULTIFORME
  4. MAGNEVIST [Suspect]
     Indication: METASTASES TO LYMPH NODES
     Dosage: 10 ML, ONCE
     Route: 042
     Dates: start: 20080729, end: 20080729
  5. LOXONIN [Concomitant]
     Dosage: UNK
     Route: 048
     Dates: start: 20080709, end: 20080729
  6. DIGOXIN [Concomitant]
     Indication: ARRHYTHMIA
     Dosage: 0.125 MG, QD
     Route: 048
     Dates: start: 20080601, end: 20080729
  7. NEUROTROPIN [ORGAN LYSATE, STANDARDIZED] [Concomitant]
     Indication: ERYTHEMA MULTIFORME
     Dosage: UNK
     Dates: start: 20080709, end: 20080728
  8. METFORMIN HYDROCHLORIDE [Concomitant]
  9. OLOPATADINE HCL [Concomitant]
     Dosage: UNK
     Dates: start: 20080712, end: 20080729
  10. OMEPRAZOLE [Concomitant]
     Dosage: UNK
     Route: 048
     Dates: start: 20080802, end: 20080816
  11. UNASYN [Concomitant]
     Dosage: UNK
     Route: 048
     Dates: start: 20080802, end: 20080806
  12. ANTEBATE [Concomitant]
     Indication: ERYTHEMA MULTIFORME
  13. WARFARIN SODIUM [Concomitant]
     Indication: ARRHYTHMIA
     Dosage: 2 MG, UNK
     Route: 048
     Dates: end: 20080729
  14. LENDORMIN [Concomitant]
     Dosage: UNK
     Route: 048
     Dates: start: 20080715, end: 20080812
  15. ADALAT CC [Concomitant]
     Dosage: UNK
     Route: 048
     Dates: start: 20080801, end: 20080812
  16. LASIX [Concomitant]
     Dosage: UNK
     Route: 042
     Dates: start: 20080730
  17. STRONG NEO-MINOPHAGEN C [Concomitant]
     Indication: ERYTHEMA MULTIFORME
     Dosage: UNK
     Dates: start: 20080709, end: 20080728
  18. FLOMOX [Concomitant]
     Dosage: UNK
     Dates: start: 20080709, end: 20080729
  19. PROHANCE [Suspect]
     Indication: NUCLEAR MAGNETIC RESONANCE IMAGING BRAIN
     Dosage: 26 ML, ONCE
     Route: 042
     Dates: start: 20080717, end: 20080717
  20. CELESTAMINE TAB [Concomitant]
     Indication: ARRHYTHMIA
     Dosage: UNK
     Route: 048
     Dates: end: 20080729
  21. ATARAX [Concomitant]
     Dosage: UNK
     Route: 048
     Dates: start: 20080716, end: 20080812
  22. ZEFNART [Concomitant]
     Indication: ERYTHEMA MULTIFORME

REACTIONS (6)
  - NEPHROGENIC SYSTEMIC FIBROSIS [None]
  - BLOOD CREATININE INCREASED [None]
  - JOINT RANGE OF MOTION DECREASED [None]
  - GAIT DISTURBANCE [None]
  - SKIN DISCOLOURATION [None]
  - SKIN INDURATION [None]
